FAERS Safety Report 5281010-1 (Version None)
Quarter: 2007Q1

REPORT INFORMATION
  Report Type: 
  Country: None (occurrence: None)
  Receive Date: 20061229
  Receipt Date: 20060929
  Transmission Date: 20070707
  Serious: Yes (Other)
  Sender: FDA-Public Use
  Company Number: 2006UW15959

PATIENT
  Age: 59 Year
  Sex: Female
  Weight: 86.182 kg

DRUGS (4)
  1. CRESTOR [Suspect]
     Indication: BLOOD CHOLESTEROL
     Dosage: 10 MG PO
     Route: 048
     Dates: start: 20040101
  2. CRESTOR [Suspect]
     Indication: BLOOD CHOLESTEROL
     Dosage: 10 MG PO
     Route: 048
     Dates: start: 20060701
  3. AMILORIDE HYDROCHLORIDE [Suspect]
     Indication: BLOOD PRESSURE
  4. RES-Q [Concomitant]

REACTIONS (3)
  - ASTHENIA [None]
  - DRUG INTERACTION [None]
  - MUSCLE SPASMS [None]
